FAERS Safety Report 6163449-5 (Version None)
Quarter: 2009Q2

REPORT INFORMATION
  Report Type: 
  Country: None (occurrence: None)
  Receive Date: 20090420
  Receipt Date: 20090420
  Transmission Date: 20091009
  Serious: No
  Sender: FDA-Public Use
  Company Number: None

PATIENT
  Age: 55 Year
  Sex: Male
  Weight: 83.9154 kg

DRUGS (3)
  1. ACETAMINOPHEN AND OXYCODONE HCL [Suspect]
     Indication: INTERVERTEBRAL DISC PROTRUSION
     Dosage: 1 TABLET 6/12 HRS PO
     Route: 048
     Dates: start: 20090324, end: 20090424
  2. ACETAMINOPHEN AND OXYCODONE HCL [Suspect]
     Indication: MIGRAINE
     Dosage: 1 TABLET 6/12 HRS PO
     Route: 048
     Dates: start: 20090324, end: 20090424
  3. ACETAMINOPHEN AND OXYCODONE HCL [Suspect]
     Indication: RHEUMATOID ARTHRITIS
     Dosage: 1 TABLET 6/12 HRS PO
     Route: 048
     Dates: start: 20090324, end: 20090424

REACTIONS (3)
  - DRUG INEFFECTIVE [None]
  - PAIN [None]
  - UNEVALUABLE EVENT [None]
